FAERS Safety Report 19916375 (Version 1)
Quarter: 2021Q4

REPORT INFORMATION
  Report Type: Spontaneous
  Country: US (occurrence: US)
  Receive Date: 20211004
  Receipt Date: 20211004
  Transmission Date: 20220303
  Serious: Yes (Hospitalization)
  Sender: FDA-Public Use
  Company Number: None

PATIENT
  Age: 24 Year
  Sex: Female

DRUGS (7)
  1. COSENTYX [Suspect]
     Active Substance: SECUKINUMAB
     Indication: Psoriatic arthropathy
     Dosage: ?          OTHER FREQUENCY:ONCE FOR 5TH DOSE;
     Route: 058
     Dates: start: 20210826
  2. CYCLOBENZAPRINE [Concomitant]
     Active Substance: CYCLOBENZAPRINE
  3. DULOXETINE [Concomitant]
     Active Substance: DULOXETINE
  4. METHOTREXATE [Concomitant]
     Active Substance: METHOTREXATE
  5. PREDNISONE [Concomitant]
     Active Substance: PREDNISONE
  6. PREGABALIN [Concomitant]
     Active Substance: PREGABALIN
  7. SERTRALINE [Concomitant]
     Active Substance: SERTRALINE HYDROCHLORIDE

REACTIONS (3)
  - Seizure [None]
  - Product dispensing error [None]
  - Inappropriate schedule of product administration [None]

NARRATIVE: CASE EVENT DATE: 20211001
